FAERS Safety Report 17196787 (Version 1)
Quarter: 2019Q4

REPORT INFORMATION
  Report Type: Report from Study
  Country: None (occurrence: US)
  Receive Date: 20191224
  Receipt Date: 20191224
  Transmission Date: 20200122
  Serious: Yes (Hospitalization, Other)
  Sender: FDA-Public Use
  Company Number: US-ABBVIE-19K-163-2997388-00

PATIENT
  Sex: Female
  Weight: 89.44 kg

DRUGS (7)
  1. ATORVASTATIN [Concomitant]
     Active Substance: ATORVASTATIN
     Indication: BLOOD CHOLESTEROL INCREASED
  2. AMLODIPINE [Concomitant]
     Active Substance: AMLODIPINE BESYLATE
     Indication: HYPERTENSION
  3. METOPROLOL. [Concomitant]
     Active Substance: METOPROLOL
     Indication: HYPERTENSION
  4. ASPIRIN. [Concomitant]
     Active Substance: ASPIRIN
     Indication: ANTICOAGULANT THERAPY
  5. HUMIRA [Suspect]
     Active Substance: ADALIMUMAB
     Indication: RHEUMATOID ARTHRITIS
     Route: 058
     Dates: start: 2013, end: 201908
  6. CYMBALTA [Concomitant]
     Active Substance: DULOXETINE HYDROCHLORIDE
     Indication: INAPPROPRIATE AFFECT
  7. LYRICA [Concomitant]
     Active Substance: PREGABALIN
     Indication: MYALGIA

REACTIONS (6)
  - Rheumatoid arthritis [Recovering/Resolving]
  - Spinal stenosis [Recovering/Resolving]
  - Surgical failure [Unknown]
  - Scoliosis [Recovering/Resolving]
  - Myalgia [Unknown]
  - Monoplegia [Recovered/Resolved with Sequelae]
